FAERS Safety Report 5033983-X (Version None)
Quarter: 2006Q2

REPORT INFORMATION
  Report Type: 
  Country: None (occurrence: None)
  Receive Date: 20060626
  Receipt Date: 20060614
  Transmission Date: 20061013
  Serious: Yes (Hospitalization)
  Sender: FDA-Public Use
  Company Number: 2006PK01343

PATIENT
  Age: 12623 Day
  Sex: Male

DRUGS (8)
  1. SEROQUEL [Suspect]
     Indication: RESTLESSNESS
     Route: 048
     Dates: start: 20010615, end: 20011026
  2. HALOPERIDOL [Concomitant]
  3. HALOPERIDOL [Concomitant]
     Dosage: LOW DOSE THERAPY
  4. DIAZEPAM [Concomitant]
  5. DIAZEPAM [Concomitant]
     Dosage: LOW DOSE THERAPY
  6. PERAZIN [Concomitant]
  7. AKINETON [Concomitant]
  8. CHLORPROTHIXEN [Concomitant]
     Dosage: LOW DOSE

REACTIONS (9)
  - BILE DUCT CANCER [None]
  - BILE DUCT STENOSIS [None]
  - COLITIS ULCERATIVE [None]
  - CONDITION AGGRAVATED [None]
  - GENERAL PHYSICAL CONDITION ABNORMAL [None]
  - PANCREATITIS CHRONIC [None]
  - POST PROCEDURAL COMPLICATION [None]
  - POST PROCEDURAL HAEMORRHAGE [None]
  - STAPHYLOCOCCAL INFECTION [None]
